FAERS Safety Report 9676128 (Version 1)
Quarter: 2013Q4

REPORT INFORMATION
  Report Type: Spontaneous
  Country: BR (occurrence: BR)
  Receive Date: 20131107
  Receipt Date: 20131107
  Transmission Date: 20140711
  Serious: Yes (Death, Other)
  Sender: FDA-Public Use
  Company Number: BR-ASTRAZENECA-2013SE80908

PATIENT
  Age: 30766 Day
  Sex: Male

DRUGS (1)
  1. CRESTOR [Suspect]
     Indication: BLOOD PRESSURE ABNORMAL
     Route: 048

REACTIONS (2)
  - Hypoglycaemia [Fatal]
  - Fall [Unknown]
